FAERS Safety Report 24547147 (Version 1)
Quarter: 2024Q4

REPORT INFORMATION
  Report Type: Spontaneous
  Country: US (occurrence: US)
  Receive Date: 20241025
  Receipt Date: 20241025
  Transmission Date: 20250115
  Serious: Yes (Hospitalization)
  Sender: RIGEL PHARMACEUTICALS
  Company Number: US-RIGEL Pharmaceuticals. INC- 20240800093

PATIENT
  Sex: Female

DRUGS (1)
  1. TAVALISSE [Suspect]
     Active Substance: FOSTAMATINIB
     Indication: Immune thrombocytopenia
     Dosage: 100 MG,1 TABLET BY MOUTH IN THE MORNING
     Route: 048

REACTIONS (7)
  - Platelet transfusion [Unknown]
  - Transfusion [Unknown]
  - Platelet count decreased [Unknown]
  - Biopsy bone marrow [Unknown]
  - Decreased appetite [Unknown]
  - Asthenia [Unknown]
  - Product prescribing issue [Unknown]

NARRATIVE: CASE EVENT DATE: 20240101
